FAERS Safety Report 5481159-4 (Version None)
Quarter: 2007Q4

REPORT INFORMATION
  Report Type: 
  Country: None (occurrence: None)
  Receive Date: 20071004
  Receipt Date: 20070927
  Transmission Date: 20080405
  Serious: Yes (Other)
  Sender: FDA-Public Use
  Company Number: 17580

PATIENT
  Age: 43 Year
  Sex: Male

DRUGS (3)
  1. LEUCOVORIN [Suspect]
     Indication: SMALL INTESTINE CARCINOMA
     Dosage: 200 MG/M2 PER _CYCLE
  2. FLUOROURACIL [Suspect]
     Indication: SMALL INTESTINE CARCINOMA
     Dosage: 2400 MG/M2 PER_CYCLE OTHER
     Route: 050
  3. IRINOTECAN HCL [Suspect]
     Indication: SMALL INTESTINE CARCINOMA
     Dosage: 180 MG/M2 PER_CYCLE

REACTIONS (8)
  - ABDOMINAL INFECTION [None]
  - ACUTE MONOCYTIC LEUKAEMIA [None]
  - ANAEMIA [None]
  - INTESTINAL OBSTRUCTION [None]
  - POST PROCEDURAL HAEMORRHAGE [None]
  - POST PROCEDURAL INFECTION [None]
  - SEPSIS [None]
  - WOUND DEHISCENCE [None]
